FAERS Safety Report 4709776-7 (Version None)
Quarter: 2005Q3

REPORT INFORMATION
  Report Type: 
  Country: None (occurrence: None)
  Receive Date: 20050707
  Receipt Date: 20050621
  Transmission Date: 20060218
  Serious: Yes (Other)
  Sender: FDA-Public Use
  Company Number: USA041286348

PATIENT
  Age: 78 Year
  Sex: Female
  Weight: 78 kg

DRUGS (2)
  1. FORTEO [Suspect]
     Indication: OSTEOPOROSIS
     Dosage: 20 UG/1 DAY
     Dates: start: 20041215
  2. EVISTA [Suspect]
     Indication: OSTEOPOROSIS

REACTIONS (7)
  - CHOLECYSTECTOMY [None]
  - GASTRIC DISORDER [None]
  - GASTRITIS [None]
  - HAEMATEMESIS [None]
  - HAEMOPTYSIS [None]
  - MEDICAL DEVICE COMPLICATION [None]
  - PANCREATIC CARCINOMA [None]
